FAERS Safety Report 17624435 (Version 3)
Quarter: 2021Q4

REPORT INFORMATION
  Report Type: Report from Study
  Country: US (occurrence: US)
  Receive Date: 20200403
  Receipt Date: 20211020
  Transmission Date: 20220303
  Serious: No
  Sender: FDA-Public Use
  Company Number: US-SHIRE-US202012081

PATIENT
  Age: 55 Year
  Sex: Female
  Weight: 61.22 kg

DRUGS (33)
  1. CUVITRU [Suspect]
     Active Substance: HUMAN IMMUNOGLOBULIN G
     Indication: Selective IgG subclass deficiency
     Dosage: 12 GRAM, Q2WEEKS
     Route: 058
     Dates: start: 20190809
  2. CUVITRU [Suspect]
     Active Substance: HUMAN IMMUNOGLOBULIN G
     Dosage: 4 GRAM, 1X/2WKS
     Route: 058
     Dates: start: 20190819
  3. CUVITRU [Suspect]
     Active Substance: HUMAN IMMUNOGLOBULIN G
     Dosage: 8 GRAM, Q2WEEKS
     Route: 058
     Dates: start: 20190809
  4. ACETAMINOPHEN [Concomitant]
     Active Substance: ACETAMINOPHEN
     Indication: Product used for unknown indication
  5. DIPHENHYDRAMINE [Concomitant]
     Active Substance: DIPHENHYDRAMINE
     Indication: Product used for unknown indication
  6. LIDOCAINE [Concomitant]
     Active Substance: LIDOCAINE
     Indication: Product used for unknown indication
  7. ARMOUR THYROID [Concomitant]
     Active Substance: THYROID, PORCINE
     Indication: Product used for unknown indication
  8. VITAMIN B COMPLEX [Concomitant]
     Active Substance: CYANOCOBALAMIN\DEXPANTHENOL\NIACINAMIDE\PYRIDOXINE HYDROCHLORIDE\RIBOFLAVIN 5^-PHOSPHATE SODIUM\THIA
     Indication: Product used for unknown indication
  9. ZOMIG [Concomitant]
     Active Substance: ZOLMITRIPTAN
     Indication: Product used for unknown indication
  10. EPINEPHRINE [Concomitant]
     Active Substance: EPINEPHRINE
     Indication: Product used for unknown indication
  11. MELATONIN [Concomitant]
     Active Substance: MELATONIN
     Indication: Product used for unknown indication
  12. NALTREXONE [Concomitant]
     Active Substance: NALTREXONE
     Indication: Product used for unknown indication
  13. VITAMIN C [Concomitant]
     Active Substance: ASCORBIC ACID
     Indication: Product used for unknown indication
  14. IBUPROFEN [Concomitant]
     Active Substance: IBUPROFEN
     Indication: Product used for unknown indication
  15. VITAMIN D3 [Concomitant]
     Active Substance: CHOLECALCIFEROL
     Indication: Product used for unknown indication
  16. ALPHA LIPOIC ACID [Concomitant]
     Active Substance: .ALPHA.-LIPOIC ACID
     Indication: Product used for unknown indication
  17. HERBALS\SPIRULINA [Concomitant]
     Active Substance: HERBALS\SPIRULINA
     Indication: Product used for unknown indication
  18. DOCONEXENT\ICOSAPENT [Concomitant]
     Active Substance: DOCONEXENT\ICOSAPENT
     Indication: Product used for unknown indication
  19. HERBALS\TURMERIC [Concomitant]
     Active Substance: HERBALS\TURMERIC
     Indication: Product used for unknown indication
  20. ATP [PARACETAMOL] [Concomitant]
  21. RELPAX [Concomitant]
     Active Substance: ELETRIPTAN HYDROBROMIDE
  22. ZOFRAN [Concomitant]
     Active Substance: ONDANSETRON HYDROCHLORIDE
  23. ASPIRIN [Concomitant]
     Active Substance: ASPIRIN
  24. IMITREX [Concomitant]
     Active Substance: SUMATRIPTAN SUCCINATE
  25. IRON [Concomitant]
     Active Substance: IRON
  26. NIACIN [Concomitant]
     Active Substance: NIACIN
  27. ECHINACEA [ECHINACEA PURPUREA] [Concomitant]
  28. DIGESTIVE ENZYMES [AMYLASE;CELLULASE;LIPASE;MALTASE;PROTEASE;SUCRASE;T [Concomitant]
  29. GLUTATHIONE [Concomitant]
     Active Substance: GLUTATHIONE
  30. IBU [Concomitant]
     Active Substance: IBUPROFEN
  31. THYROID [Concomitant]
     Active Substance: LEVOTHYROXINE\LIOTHYRONINE
  32. DIM [DICYCLOVERINE HYDROCHLORIDE;MEFENAMIC ACID] [Concomitant]
  33. HERBALS [Concomitant]
     Active Substance: HERBALS

REACTIONS (6)
  - SARS-CoV-2 test negative [Unknown]
  - Illness [Unknown]
  - Dyspnoea [Recovered/Resolved]
  - Dizziness [Unknown]
  - Dysphagia [Unknown]
  - Breast disorder [Unknown]

NARRATIVE: CASE EVENT DATE: 20210923
